FAERS Safety Report 13495014 (Version 1)
Quarter: 2017Q2

REPORT INFORMATION
  Report Type: Report from Study
  Country: None (occurrence: CA)
  Receive Date: 20170428
  Receipt Date: 20170428
  Transmission Date: 20170830
  Serious: Yes (Hospitalization, Other)
  Sender: FDA-Public Use
  Company Number: CA-ABBVIE-17K-028-1953099-00

PATIENT
  Sex: Female

DRUGS (1)
  1. HUMIRA [Suspect]
     Active Substance: ADALIMUMAB
     Indication: PRODUCT USED FOR UNKNOWN INDICATION
     Route: 058
     Dates: start: 20130501

REACTIONS (5)
  - Goitre [Recovered/Resolved]
  - Alopecia [Recovering/Resolving]
  - Feeling cold [Recovering/Resolving]
  - Thyroid cancer [Recovered/Resolved]
  - Infection [Not Recovered/Not Resolved]
